FAERS Safety Report 12323510 (Version 1)
Quarter: 2016Q2

REPORT INFORMATION
  Report Type: Spontaneous
  Country: JP (occurrence: JP)
  Receive Date: 20160502
  Receipt Date: 20160502
  Transmission Date: 20160815
  Serious: Yes (Other)
  Sender: FDA-Public Use
  Company Number: JP-CELGENEUS-JPN-2016037906

PATIENT
  Age: 70 Year
  Sex: Female

DRUGS (7)
  1. VIDAZA [Suspect]
     Active Substance: AZACITIDINE
     Route: 065
  2. VIDAZA [Suspect]
     Active Substance: AZACITIDINE
     Route: 065
     Dates: end: 201602
  3. VIDAZA [Suspect]
     Active Substance: AZACITIDINE
     Route: 065
  4. VIDAZA [Suspect]
     Active Substance: AZACITIDINE
     Route: 065
  5. VIDAZA [Suspect]
     Active Substance: AZACITIDINE
     Route: 065
  6. VIDAZA [Suspect]
     Active Substance: AZACITIDINE
     Indication: PRODUCT USED FOR UNKNOWN INDICATION
     Route: 065
     Dates: start: 201506
  7. VIDAZA [Suspect]
     Active Substance: AZACITIDINE
     Route: 065

REACTIONS (1)
  - Sepsis [Recovering/Resolving]

NARRATIVE: CASE EVENT DATE: 201602
